FAERS Safety Report 21227761 (Version 3)
Quarter: 2023Q2

REPORT INFORMATION
  Report Type: Spontaneous
  Country: US (occurrence: US)
  Receive Date: 20220818
  Receipt Date: 20230629
  Transmission Date: 20230721
  Serious: No
  Sender: FDA-Public Use
  Company Number: US-PFIZER INC-2021285028

PATIENT
  Age: 77 Year
  Sex: Female

DRUGS (1)
  1. IBRANCE [Suspect]
     Active Substance: PALBOCICLIB
     Dosage: 125 MG, CYCLIC (TAKE 1 TABLET MY MOUTH EVERY DAY ON DAYS 1-21 THEN 7 DAYS OFF EVERY 28 DAYS)
     Route: 048

REACTIONS (1)
  - Neoplasm recurrence [Unknown]
